FAERS Safety Report 5652354-6 (Version None)
Quarter: 2008Q1

REPORT INFORMATION
  Report Type: 
  Country: None (occurrence: None)
  Receive Date: 20080305
  Receipt Date: 20080305
  Transmission Date: 20080703
  Serious: No
  Sender: FDA-Public Use
  Company Number: None

PATIENT

DRUGS (1)
  1. OPTIRAY 350 [Suspect]
     Dosage: 100CC  IV
     Route: 042
     Dates: start: 20080225

REACTIONS (1)
  - URTICARIA [None]
